FAERS Safety Report 4470198-8 (Version None)
Quarter: 2004Q4

REPORT INFORMATION
  Report Type: 
  Country: None (occurrence: None)
  Receive Date: 20041008
  Receipt Date: 20040921
  Transmission Date: 20050328
  Serious: Yes (Hospitalization)
  Sender: FDA-Public Use
  Company Number: JP-MERCK-0409USA02009

PATIENT
  Age: 63 Year
  Sex: Female

DRUGS (3)
  1. FOSAMAX [Suspect]
     Indication: OSTEOPOROSIS
     Route: 048
     Dates: start: 20040804, end: 20040913
  2. PREDNISOLONE [Concomitant]
     Route: 048
     Dates: start: 20000801
  3. ALTAT [Concomitant]
     Route: 048
     Dates: start: 20000801

REACTIONS (3)
  - GRANULOCYTOPENIA [None]
  - STEVENS-JOHNSON SYNDROME [None]
  - THROMBOCYTOPENIA [None]
